FAERS Safety Report 23505593 (Version 1)
Quarter: 2024Q1

REPORT INFORMATION
  Report Type: Report from Study
  Country: GB (occurrence: GB)
  Receive Date: 20240209
  Receipt Date: 20240209
  Transmission Date: 20240410
  Serious: Yes (Disabling)
  Sender: FDA-Public Use
  Company Number: GB-TEVA-VS-3153801

PATIENT
  Age: 6 Decade
  Sex: Male

DRUGS (1)
  1. CHLORPROMAZINE [Suspect]
     Active Substance: CHLORPROMAZINE
     Indication: Schizophrenia
     Dosage: STARTED }15 YEARS AND STOPPED }5 YEARS.
     Route: 065

REACTIONS (1)
  - Parkinsonism [Not Recovered/Not Resolved]
